FAERS Safety Report 5811802-9 (Version None)
Quarter: 2008Q3

REPORT INFORMATION
  Report Type: 
  Country: None (occurrence: None)
  Receive Date: 20080715
  Receipt Date: 20080715
  Transmission Date: 20090109
  Serious: Yes (Hospitalization)
  Sender: FDA-Public Use
  Company Number: None

PATIENT
  Age: 57 Year
  Sex: Male
  Weight: 90.7194 kg

DRUGS (5)
  1. PEGASYS [Suspect]
     Indication: HEPATITIS C
     Dosage: 180 MCG WEEKLY SQ
     Route: 058
     Dates: start: 20080516, end: 20080725
  2. CO-PEGSYS 200MG ROCHE [Suspect]
     Indication: HEPATITIS C
     Dosage: 1200MG DAILY PO
     Route: 048
     Dates: start: 20080516, end: 20080714
  3. FLURAZEPAM [Concomitant]
  4. CLONAZEPAM [Concomitant]
  5. NAPROXEN [Concomitant]

REACTIONS (2)
  - ABSCESS LIMB [None]
  - CELLULITIS [None]
